FAERS Safety Report 8020336-5 (Version None)
Quarter: 2012Q1

REPORT INFORMATION
  Report Type: 
  Country: None (occurrence: None)
  Receive Date: 20120103
  Receipt Date: 20100115
  Transmission Date: 20120608
  Serious: Yes (Other)
  Sender: FDA-Public Use
  Company Number: TH-ROCHE-1026020

PATIENT
  Sex: Female

DRUGS (4)
  1. XOLAIR [Suspect]
     Indication: ASTHMA
     Route: 058
     Dates: end: 20100101
  2. BRONCHODILATOR NOS [Concomitant]
     Dosage: INHALER
  3. ORAL STEROID [Concomitant]
  4. XOLAIR [Suspect]
     Route: 058

REACTIONS (2)
  - WRONG TECHNIQUE IN DRUG USAGE PROCESS [None]
  - ASTHMA [None]
